FAERS Safety Report 15943693 (Version 2)
Quarter: 2019Q1

REPORT INFORMATION
  Report Type: Spontaneous
  Country: US (occurrence: US)
  Receive Date: 20190210
  Receipt Date: 20190306
  Transmission Date: 20190417
  Serious: Yes (Hospitalization)
  Sender: FDA-Public Use
  Company Number: PHEH2019US005531

PATIENT
  Age: 13 Year
  Sex: Female
  Weight: 40.1 kg

DRUGS (4)
  1. MICAFUNGIN. [Concomitant]
     Active Substance: MICAFUNGIN SODIUM
     Indication: IMMUNOSUPPRESSION
     Dosage: 100 MG, Q24H
     Route: 042
     Dates: start: 20190112
  2. VORICONAZOLE. [Concomitant]
     Active Substance: VORICONAZOLE
     Indication: IMMUNOSUPPRESSION
     Dosage: 6 MG/KG, Q12H
     Route: 042
     Dates: start: 20190107
  3. KYMRIAH [Suspect]
     Active Substance: TISAGENLECLEUCEL
     Indication: ACUTE LYMPHOCYTIC LEUKAEMIA
     Dosage: UNK
     Route: 042
     Dates: start: 20190116
  4. CEFEPIME [Concomitant]
     Active Substance: CEFEPIME HYDROCHLORIDE
     Indication: IMMUNOSUPPRESSION
     Dosage: 50 MG/KG, Q8H
     Route: 042
     Dates: start: 20190107

REACTIONS (5)
  - Cytokine release syndrome [Recovered/Resolved]
  - Tachycardia [Not Recovered/Not Resolved]
  - Coagulopathy [Unknown]
  - Pyrexia [Recovering/Resolving]
  - Hypotension [Unknown]

NARRATIVE: CASE EVENT DATE: 20190118
